FAERS Safety Report 16568429 (Version 2)
Quarter: 2019Q3

REPORT INFORMATION
  Report Type: Report from Study
  Country: US (occurrence: US)
  Receive Date: 20190712
  Receipt Date: 20190805
  Transmission Date: 20191004
  Serious: Yes (Other)
  Sender: FDA-Public Use
  Company Number: US-JAZZ-2019-US-008929

PATIENT
  Age: 29 Year
  Sex: Male

DRUGS (4)
  1. LAMICTAL [Concomitant]
     Active Substance: LAMOTRIGINE
     Indication: PRODUCT USED FOR UNKNOWN INDICATION
  2. XYREM [Suspect]
     Active Substance: SODIUM OXYBATE
     Indication: NARCOLEPSY
     Dosage: 2.25 G, BID
     Route: 048
     Dates: start: 201906, end: 2019
  3. LATUDA [Concomitant]
     Active Substance: LURASIDONE HYDROCHLORIDE
     Indication: PRODUCT USED FOR UNKNOWN INDICATION
  4. XYREM [Suspect]
     Active Substance: SODIUM OXYBATE
     Dosage: UNKNOWN INCREASED DOSE
     Route: 048
     Dates: start: 2019, end: 2019

REACTIONS (4)
  - Condition aggravated [Not Recovered/Not Resolved]
  - Asthenopia [Not Recovered/Not Resolved]
  - Bipolar disorder [Not Recovered/Not Resolved]
  - Anxiety [Unknown]

NARRATIVE: CASE EVENT DATE: 201906
